FAERS Safety Report 4621456-5 (Version None)
Quarter: 2005Q2

REPORT INFORMATION
  Report Type: 
  Country: None (occurrence: None)
  Receive Date: 20050318
  Receipt Date: 20041104
  Transmission Date: 20051028
  Serious: Yes (Other)
  Sender: FDA-Public Use
  Company Number: 385626

PATIENT

DRUGS (1)
  1. BUMEX [Suspect]

REACTIONS (1)
  - THROMBOCYTOPENIA [None]
